FAERS Safety Report 5967638-1 (Version None)
Quarter: 2008Q4

REPORT INFORMATION
  Report Type: 
  Country: None (occurrence: None)
  Receive Date: 20081126
  Receipt Date: 20081117
  Transmission Date: 20090506
  Serious: Yes (Disabling, Other)
  Sender: FDA-Public Use
  Company Number: PHHY2008JP22725

PATIENT
  Sex: Female
  Weight: 56 kg

DRUGS (6)
  1. ZOMETA [Suspect]
     Indication: METASTASES TO BONE
     Dosage: 4 MG, QMO
     Route: 042
     Dates: start: 20060509, end: 20070522
  2. AREDIA [Suspect]
     Indication: METASTASES TO BONE
     Dosage: 90 MG, QMO
     Route: 042
     Dates: start: 20050901, end: 20080509
  3. PACLITAXEL [Concomitant]
     Indication: BREAST CANCER METASTATIC
     Dosage: 120 MG
     Route: 042
     Dates: start: 20051101, end: 20060201
  4. NAVELBINE [Concomitant]
     Indication: BREAST CANCER METASTATIC
     Dosage: 30 MG
     Route: 042
     Dates: start: 20060801, end: 20070101
  5. GEMZAR [Concomitant]
     Indication: BREAST CANCER METASTATIC
     Dosage: 1200 MG
     Route: 042
     Dates: start: 20070201, end: 20071201
  6. XELODA [Concomitant]
     Indication: BREAST CANCER METASTATIC
     Dosage: 2400 MG
     Route: 048
     Dates: start: 20071201, end: 20080801

REACTIONS (5)
  - ORAL DISCOMFORT [None]
  - ORAL DISORDER [None]
  - OSTEONECROSIS [None]
  - PAIN [None]
  - PERIODONTITIS [None]
